FAERS Safety Report 17217764 (Version 2)
Quarter: 2020Q1

REPORT INFORMATION
  Report Type: Spontaneous
  Country: CA (occurrence: CA)
  Receive Date: 20191231
  Receipt Date: 20200102
  Transmission Date: 20200409
  Serious: Yes (Other)
  Sender: FDA-Public Use
  Company Number: CA-AUROBINDO-AUR-APL-2019-106957

PATIENT
  Age: 84 Year
  Sex: Female

DRUGS (39)
  1. APO-LEVOCARB CR [Suspect]
     Active Substance: CARBIDOPA\LEVODOPA
     Dosage: 1 DOSAGE FORM, ONCE A DAY
     Route: 065
  2. BISOPROLOL FUMARATE. [Suspect]
     Active Substance: BISOPROLOL FUMARATE
     Indication: PRODUCT USED FOR UNKNOWN INDICATION
     Dosage: UNK
     Route: 065
  3. DIMENHYDRINATE. [Suspect]
     Active Substance: DIMENHYDRINATE
     Indication: NAUSEA
     Dosage: 50 MILLIGRAM
     Route: 065
  4. METOCLOPRAMIDE. [Suspect]
     Active Substance: METOCLOPRAMIDE
     Indication: DIVERTICULITIS
     Dosage: 10 MILLIGRAM
     Route: 065
  5. RISEDRONIC ACID [Suspect]
     Active Substance: RISEDRONIC ACID
     Indication: OSTEOPOROSIS
     Dosage: 150 MILLIGRAM
     Route: 065
  6. TRAZODONE [Suspect]
     Active Substance: TRAZODONE HYDROCHLORIDE
     Indication: INSOMNIA
     Dosage: 25 MILLIGRAM
     Route: 048
  7. CANDESARTAN TABLETS [Suspect]
     Active Substance: CANDESARTAN
     Indication: HYPERTENSION
     Dosage: 1 DOSAGE FORM, ONCE A DAY
     Route: 065
  8. PANTOPRAZOLE [Suspect]
     Active Substance: PANTOPRAZOLE
     Indication: NAUSEA
     Dosage: 1 DOSAGE FORM, ONCE A DAY
     Route: 048
  9. CARBIDOPA;LEVODOPA [Suspect]
     Active Substance: CARBIDOPA\LEVODOPA
     Indication: PARKINSON^S DISEASE
     Dosage: 3 DOSAGE FORM, ONCE A DAY
     Route: 065
  10. ERGOCALCIFEROL. [Suspect]
     Active Substance: ERGOCALCIFEROL
     Indication: OSTEOPOROSIS
     Dosage: UNK
     Route: 065
  11. RISEDRONIC ACID [Suspect]
     Active Substance: RISEDRONIC ACID
     Dosage: 150 MILLIGRAM, ONCE A DAY
     Route: 065
  12. BETAHISTINE [Suspect]
     Active Substance: BETAHISTINE
     Indication: VERTIGO
     Dosage: 8 MILLIGRAM, ONCE A DAY
     Route: 065
  13. CITALOPRAM [Suspect]
     Active Substance: CITALOPRAM HYDROBROMIDE
     Dosage: 1 DOSAGE FORM, ONCE A DAY
     Route: 065
  14. APO-LEVOCARB CR [Suspect]
     Active Substance: CARBIDOPA\LEVODOPA
     Indication: PARKINSON^S DISEASE
     Dosage: UNK
     Route: 065
  15. CANDESARTAN;HYDROCHLOROTHIAZIDE [Suspect]
     Active Substance: CANDESARTAN CILEXETIL\HYDROCHLOROTHIAZIDE
     Indication: HYPERTENSION
     Dosage: 1 DOSAGE FORM, ONCE A DAY
     Route: 048
  16. ROSUVASTATIN TABLET [Suspect]
     Active Substance: ROSUVASTATIN
     Indication: HAEMORRHAGIC STROKE
     Dosage: 20 MILLIGRAM, ONCE A DAY
     Route: 065
  17. ERGOCALCIFEROL. [Suspect]
     Active Substance: ERGOCALCIFEROL
     Dosage: 1 DOSAGE FORM, ONCE A DAY
     Route: 065
  18. LEVOTHYROXINE. [Suspect]
     Active Substance: LEVOTHYROXINE
     Indication: HYPOTHYROIDISM
     Dosage: UNK
     Route: 065
  19. METOCLOPRAMIDE. [Suspect]
     Active Substance: METOCLOPRAMIDE
     Dosage: 10 MILLIGRAM, 3 TIMES A DAY
     Route: 065
  20. TIMOLOL. [Suspect]
     Active Substance: TIMOLOL
     Indication: GLAUCOMA
     Dosage: UNK
     Route: 047
  21. TIMOLOL. [Suspect]
     Active Substance: TIMOLOL
     Dosage: 2 DOSAGE FORM, ONCE A DAY
     Route: 047
  22. CANDESARTAN HCT TABLETS [Suspect]
     Active Substance: CANDESARTAN CILEXETIL\HYDROCHLOROTHIAZIDE
     Dosage: 4 MILLIGRAM
     Route: 048
  23. APO-LEVOCARB CR [Suspect]
     Active Substance: CARBIDOPA\LEVODOPA
     Indication: PARKINSON^S DISEASE
     Dosage: 3 DOSAGE FORM, ONCE A DAY
     Route: 065
  24. APO-MIRTAZAPINE [Suspect]
     Active Substance: MIRTAZAPINE
     Indication: DEPRESSED MOOD
     Dosage: 1 DOSAGE FORM, ONCE A DAY
     Route: 065
  25. BISOPROLOL FUMARATE. [Suspect]
     Active Substance: BISOPROLOL FUMARATE
     Dosage: 1 DOSAGE FORM, ONCE A DAY
     Route: 065
  26. RISEDRONIC ACID [Suspect]
     Active Substance: RISEDRONIC ACID
     Dosage: 150 MILLIGRAM,1  EVERY 1 MONTHS
     Route: 065
  27. BETAHISTINE [Suspect]
     Active Substance: BETAHISTINE
     Dosage: 8 MILLIGRAM, 3 TIMES A DAY
     Route: 065
  28. CANDESARTAN HCT TABLETS [Suspect]
     Active Substance: CANDESARTAN CILEXETIL\HYDROCHLOROTHIAZIDE
     Indication: HYPERTENSION
     Dosage: 4 MILLIGRAM, ONCE A DAY
     Route: 048
  29. CANDESARTAN HCT TABLETS [Suspect]
     Active Substance: CANDESARTAN CILEXETIL\HYDROCHLOROTHIAZIDE
     Dosage: 1 DOSAGE FORM, ONCE A DAY
     Route: 048
  30. CETIRIZINE [Suspect]
     Active Substance: CETIRIZINE HYDROCHLORIDE
     Indication: EYE PRURITUS
     Dosage: 20 MILLIGRAM, ONCE A DAY
     Route: 065
  31. RISEDRONIC ACID [Suspect]
     Active Substance: RISEDRONIC ACID
     Dosage: 5 MILLIGRAM
     Route: 065
  32. BETAHISTINE [Suspect]
     Active Substance: BETAHISTINE
     Dosage: 8 MILLIGRAM
     Route: 065
  33. CITALOPRAM [Suspect]
     Active Substance: CITALOPRAM HYDROBROMIDE
     Indication: DEPRESSED MOOD
     Dosage: 5 MILLIGRAM, ONCE A DAY
     Route: 065
  34. BETAHISTINE [Suspect]
     Active Substance: BETAHISTINE
     Dosage: 8 MILLIGRAM, TWO TIMES A DAY
     Route: 065
  35. ROSUVASTATIN TABLET [Suspect]
     Active Substance: ROSUVASTATIN
     Dosage: UNK
     Route: 065
  36. CANDESARTAN;HYDROCHLOROTHIAZIDE [Suspect]
     Active Substance: CANDESARTAN CILEXETIL\HYDROCHLOROTHIAZIDE
     Dosage: 4.0 MILLIGRAM, ONCE A DAY
     Route: 048
  37. CANDESARTAN;HYDROCHLOROTHIAZIDE [Suspect]
     Active Substance: CANDESARTAN CILEXETIL\HYDROCHLOROTHIAZIDE
     Dosage: 4 MILLIGRAM
     Route: 048
  38. LEVOTHYROXINE. [Suspect]
     Active Substance: LEVOTHYROXINE
     Dosage: 1 DOSAGE FORM, ONCE A DAY
     Route: 065
  39. TRAZODONE [Suspect]
     Active Substance: TRAZODONE HYDROCHLORIDE
     Indication: INSOMNIA
     Dosage: 50 MILLIGRAM, ONCE A DAY
     Route: 048

REACTIONS (21)
  - Parkinson^s disease [Not Recovered/Not Resolved]
  - Vertigo [Not Recovered/Not Resolved]
  - Decreased appetite [Not Recovered/Not Resolved]
  - Dizziness [Not Recovered/Not Resolved]
  - Fatigue [Not Recovered/Not Resolved]
  - Hypersensitivity [Not Recovered/Not Resolved]
  - Vomiting [Not Recovered/Not Resolved]
  - Condition aggravated [Not Recovered/Not Resolved]
  - Dry mouth [Not Recovered/Not Resolved]
  - Hypotension [Not Recovered/Not Resolved]
  - Nausea [Not Recovered/Not Resolved]
  - Constipation [Not Recovered/Not Resolved]
  - Vitamin B12 decreased [Not Recovered/Not Resolved]
  - Product use in unapproved indication [Not Recovered/Not Resolved]
  - Off label use [Not Recovered/Not Resolved]
  - Lacrimation increased [Not Recovered/Not Resolved]
  - Abdominal distension [Not Recovered/Not Resolved]
  - Fall [Not Recovered/Not Resolved]
  - Depressed mood [Not Recovered/Not Resolved]
  - Eye pruritus [Not Recovered/Not Resolved]
  - Drug ineffective [Not Recovered/Not Resolved]
